FAERS Safety Report 17041334 (Version 5)
Quarter: 2019Q4

REPORT INFORMATION
  Report Type: Report from Study
  Country: US (occurrence: US)
  Receive Date: 20191118
  Receipt Date: 20191211
  Transmission Date: 20200122
  Serious: Yes (Hospitalization, Disabling, Other)
  Sender: FDA-Public Use
  Company Number: PHHY2019US121803

PATIENT
  Age: 48 Year
  Sex: Male
  Weight: 91.9 kg

DRUGS (3)
  1. LAMPRENE [Suspect]
     Active Substance: CLOFAZIMINE
     Indication: MYCOBACTERIUM ABSCESSUS INFECTION
     Dosage: 100 MG, UNK
     Route: 048
     Dates: start: 20180223
  2. TEDIZOLID [Suspect]
     Active Substance: TEDIZOLID
     Indication: MYCOBACTERIUM AVIUM COMPLEX INFECTION
     Dosage: 200 MG, UNK
     Route: 065
     Dates: start: 20190504, end: 20190514
  3. AMIKACIN. [Suspect]
     Active Substance: AMIKACIN
     Indication: MYCOBACTERIAL INFECTION
     Dosage: 400 MG
     Route: 065
     Dates: start: 20191108, end: 20191118

REACTIONS (15)
  - Hypoaesthesia [Not Recovered/Not Resolved]
  - Motor dysfunction [Recovering/Resolving]
  - Deafness [Recovering/Resolving]
  - Back pain [Not Recovered/Not Resolved]
  - Pruritus [Recovered/Resolved]
  - Diarrhoea [Recovered/Resolved]
  - Dyschromatopsia [Recovered/Resolved]
  - Vision blurred [Recovered/Resolved]
  - Post procedural complication [Unknown]
  - Sensory loss [Not Recovered/Not Resolved]
  - Muscular weakness [Recovering/Resolving]
  - Optic neuropathy [Recovered/Resolved]
  - Muscle twitching [Recovering/Resolving]
  - Leukocytosis [Recovered/Resolved]
  - Pyrexia [Recovered/Resolved]

NARRATIVE: CASE EVENT DATE: 20181008
